FAERS Safety Report 25543035 (Version 2)
Quarter: 2025Q4

REPORT INFORMATION
  Report Type: Spontaneous
  Country: US (occurrence: US)
  Receive Date: 20250711
  Receipt Date: 20251010
  Transmission Date: 20260118
  Serious: Yes (Other)
  Sender: JOHNSON AND JOHNSON
  Company Number: US-JNJFOC-20250711164

PATIENT
  Age: 71 Year
  Sex: Female

DRUGS (1)
  1. CARVYKTI [Suspect]
     Active Substance: CILTACABTAGENE AUTOLEUCEL
     Indication: Plasma cell myeloma
     Dates: start: 20250514

REACTIONS (4)
  - Neurotoxicity [Not Recovered/Not Resolved]
  - Neutropenia [Unknown]
  - Tremor [Recovered/Resolved]
  - Parainfluenzae virus infection [Unknown]

NARRATIVE: CASE EVENT DATE: 20250525
